FAERS Safety Report 4765843-3 (Version None)
Quarter: 2005Q3

REPORT INFORMATION
  Report Type: 
  Country: None (occurrence: None)
  Receive Date: 20050906
  Receipt Date: 20050824
  Transmission Date: 20060218
  Serious: Yes (Life-Threatening, Hospitalization, Other)
  Sender: FDA-Public Use
  Company Number: PTWYE929824AUG05

PATIENT
  Sex: Female

DRUGS (6)
  1. TAZOBAC (PIPERACILLIN/TAZOBACTAM, INJECTION) [Suspect]
     Indication: NOSOCOMIAL INFECTION
     Dosage: 18 G 1X PER 1 DAY, INTRAVENOUS
     Route: 042
     Dates: start: 20050622, end: 20050704
  2. ACETAMINOPHEN [Concomitant]
  3. ENOXAPARIN SODIUM [Concomitant]
  4. TRAMADOL HCL [Concomitant]
  5. CEFAZOLIN [Concomitant]
  6. ISOFLURANE [Concomitant]

REACTIONS (3)
  - BLOOD LACTATE DEHYDROGENASE INCREASED [None]
  - HYPERPYREXIA [None]
  - NEUTROPENIA [None]
